FAERS Safety Report 12933723 (Version 2)
Quarter: 2017Q2

REPORT INFORMATION
  Report Type: Report from Study
  Country: US (occurrence: US)
  Receive Date: 20161111
  Receipt Date: 20170524
  Transmission Date: 20170830
  Serious: Yes (Hospitalization)
  Sender: FDA-Public Use
  Company Number: US-BIOGEN-2011BI004657

PATIENT
  Sex: Male
  Weight: 102.15 kg

DRUGS (1)
  1. TYSABRI [Suspect]
     Active Substance: NATALIZUMAB
     Indication: MULTIPLE SCLEROSIS
     Dosage: IINFUSED OVER 1 HOUR
     Route: 042
     Dates: start: 20061129

REACTIONS (3)
  - Multiple sclerosis relapse [Recovered/Resolved]
  - Pneumonia [Unknown]
  - Abdominal hernia [Recovered/Resolved]

NARRATIVE: CASE EVENT DATE: 2008
